FAERS Safety Report 10100601 (Version 1)
Quarter: 2014Q2

REPORT INFORMATION
  Report Type: Spontaneous
  Country: US (occurrence: US)
  Receive Date: 20140423
  Receipt Date: 20140423
  Transmission Date: 20141212
  Serious: Yes (Other)
  Sender: FDA-Public Use
  Company Number: US-BAXTER-2014BAX019829

PATIENT
  Age: 4 Year
  Sex: Male

DRUGS (5)
  1. GAMMAGARD LIQUID [Suspect]
     Indication: STEVENS-JOHNSON SYNDROME
     Route: 042
  2. AZITHROMYCIN [Concomitant]
     Indication: EVIDENCE BASED TREATMENT
     Route: 065
  3. ACYCLOVIR [Concomitant]
     Indication: EVIDENCE BASED TREATMENT
     Route: 065
  4. CLINDAMYCIN [Concomitant]
     Indication: EVIDENCE BASED TREATMENT
     Route: 065
  5. OSELTAMIVIR [Concomitant]
     Indication: INFLUENZA
     Route: 065

REACTIONS (1)
  - Dyshidrotic eczema [Unknown]
